FAERS Safety Report 9704193 (Version 1)
Quarter: 2013Q4

REPORT INFORMATION
  Report Type: Spontaneous
  Country: US (occurrence: US)
  Receive Date: 20131122
  Receipt Date: 20131122
  Transmission Date: 20140711
  Serious: No
  Sender: FDA-Public Use
  Company Number: US-PFIZER INC-2013334060

PATIENT
  Age: 62 Year
  Sex: Female
  Weight: 81.63 kg

DRUGS (3)
  1. LYRICA [Suspect]
     Indication: FIBROMYALGIA
     Dosage: 100 MG, 2X/DAY
  2. LYRICA [Suspect]
     Indication: ARTHRITIS
  3. LYRICA [Suspect]
     Indication: CARPAL TUNNEL SYNDROME

REACTIONS (2)
  - Tooth disorder [Unknown]
  - Off label use [Unknown]
